FAERS Safety Report 23800509 (Version 1)
Quarter: 2024Q2

REPORT INFORMATION
  Report Type: Spontaneous
  Country: US (occurrence: US)
  Receive Date: 20240430
  Receipt Date: 20240430
  Transmission Date: 20240716
  Serious: Yes (Hospitalization, Other)
  Sender: FDA-Public Use
  Company Number: US-SSPHARMA-2024USSSP00039

PATIENT
  Age: 15 Year
  Sex: Female

DRUGS (3)
  1. CALCITRIOL [Suspect]
     Active Substance: CALCITRIOL
     Indication: Hypocalcaemia
  2. CALCITRIOL [Suspect]
     Active Substance: CALCITRIOL
  3. CALCIUM [Concomitant]
     Active Substance: CALCIUM
     Indication: Hypocalcaemia

REACTIONS (5)
  - Nephrolithiasis [Recovered/Resolved]
  - Renal cyst [Recovered/Resolved]
  - Acute kidney injury [Recovered/Resolved]
  - Nephrocalcinosis [Recovered/Resolved]
  - Hypercalcaemia [Recovered/Resolved]
